FAERS Safety Report 26136749 (Version 1)
Quarter: 2025Q4

REPORT INFORMATION
  Report Type: Spontaneous
  Country: US (occurrence: None)
  Receive Date: 20251209
  Receipt Date: 20251209
  Transmission Date: 20260118
  Serious: Yes (Other)
  Sender: FDA-CTU
  Company Number: None

PATIENT

DRUGS (1)
  1. ESCITALOPRAM [Suspect]
     Active Substance: ESCITALOPRAM OXALATE

REACTIONS (13)
  - Drug ineffective [None]
  - Therapy cessation [None]
  - Withdrawal syndrome [None]
  - Anxiety [None]
  - Panic attack [None]
  - Hyperacusis [None]
  - Electric shock sensation [None]
  - Bruxism [None]
  - Cognitive disorder [None]
  - Insomnia [None]
  - Palpitations [None]
  - Impaired work ability [None]
  - Anhedonia [None]

NARRATIVE: CASE EVENT DATE: 20230724
